FAERS Safety Report 23799378 (Version 1)
Quarter: 2024Q2

REPORT INFORMATION
  Report Type: Spontaneous
  Country: US (occurrence: US)
  Receive Date: 20240430
  Receipt Date: 20240430
  Transmission Date: 20240716
  Serious: No
  Sender: FDA-Public Use
  Company Number: US-PFIZER INC-202400096747

PATIENT
  Age: 66 Year
  Sex: Female

DRUGS (1)
  1. IBRANCE [Suspect]
     Active Substance: PALBOCICLIB
     Dosage: 75 MG, CYCLIC: DAILY FOR 21 OUT OF 28 DAYS
     Route: 048

REACTIONS (5)
  - Abnormal dreams [Unknown]
  - Nasal congestion [Unknown]
  - Secretion discharge [Unknown]
  - Nausea [Unknown]
  - Sleep disorder [Unknown]
